FAERS Safety Report 9809922 (Version 2)
Quarter: 2015Q4

REPORT INFORMATION
  Report Type: Spontaneous
  Country: US (occurrence: US)
  Receive Date: 20140110
  Receipt Date: 20151228
  Transmission Date: 20160305
  Serious: Yes (Other)
  Sender: FDA-Public Use
  Company Number: US-SANOFI-AVENTIS-2013SA068240

PATIENT
  Age: 56 Year

DRUGS (2)
  1. PLAVIX [Suspect]
     Active Substance: CLOPIDOGREL BISULFATE
     Indication: TRANSIENT ISCHAEMIC ATTACK
     Route: 065
     Dates: start: 20090101, end: 20120701
  2. ASPIRIN. [Concomitant]
     Active Substance: ASPIRIN
     Dates: start: 1990, end: 2009

REACTIONS (6)
  - Cerebral haemorrhage [Unknown]
  - Amnesia [Unknown]
  - Erectile dysfunction [Unknown]
  - Speech disorder [Unknown]
  - Activities of daily living impaired [Unknown]
  - Headache [Unknown]

NARRATIVE: CASE EVENT DATE: 20120725
